FAERS Safety Report 4393219-X (Version None)
Quarter: 2004Q3

REPORT INFORMATION
  Report Type: 
  Country: None (occurrence: None)
  Receive Date: 20040702
  Receipt Date: 20040622
  Transmission Date: 20050211
  Serious: Yes (Hospitalization)
  Sender: FDA-Public Use
  Company Number: JP-JNJFOC-20040405441

PATIENT
  Age: 73 Year
  Sex: Male
  Weight: 76 kg

DRUGS (12)
  1. REMICADE [Suspect]
     Indication: RHEUMATOID ARTHRITIS
     Dosage: 3 MG/KG, 1 IN 1 AS NECESSARY, INTRAVENOUS DRIP
     Route: 041
     Dates: start: 20040224, end: 20040224
  2. REMICADE [Suspect]
     Indication: RHEUMATOID ARTHRITIS
     Dosage: 3 MG/KG, 1 IN 1 AS NECESSARY, INTRAVENOUS DRIP
     Route: 041
     Dates: start: 20040311, end: 20040311
  3. RHEUMATREX [Suspect]
     Indication: RHEUMATOID ARTHRITIS
     Dosage: 6 MG, IN 1 WEEK, ORAL
     Route: 048
     Dates: start: 20040219, end: 20040408
  4. METHOTREXATE [Concomitant]
  5. METHYCOBAL (MECOBALAMIN) [Concomitant]
  6. SELBEX (TEPRENONE) [Concomitant]
  7. ROCALTROL [Concomitant]
  8. PRAVASTATIN SODIUM [Concomitant]
  9. RENDORMIN (ALL OTHER THERAPEUTIC PRODUCTS) [Concomitant]
  10. TAKEPPRON (LANSOPRAZOLE) [Concomitant]
  11. PREDNISOLONE [Suspect]
     Indication: RHEUMATOID ARTHRITIS
     Dosage: 5 MG, 1 IN 1 DAY, ORAL
     Route: 048
     Dates: start: 20041212, end: 20040226
  12. MOBIC [Suspect]
     Indication: RHEUMATOID ARTHRITIS
     Dosage: 10 MG, I IN I DAY, ORAL
     Route: 048
     Dates: start: 20040224, end: 20040408

REACTIONS (16)
  - CARDIAC FAILURE [None]
  - CARDIOMEGALY [None]
  - CHEST PAIN [None]
  - CONDITION AGGRAVATED [None]
  - DRUG INTERACTION [None]
  - ENTEROBACTER INFECTION [None]
  - INFECTION [None]
  - INTERSTITIAL LUNG DISEASE [None]
  - MARKEDLY REDUCED DIETARY INTAKE [None]
  - NAUSEA [None]
  - PULMONARY FIBROSIS [None]
  - PYREXIA [None]
  - REFLUX OESOPHAGITIS [None]
  - RESPIRATORY DISTRESS [None]
  - SPUTUM CULTURE POSITIVE [None]
  - VOMITING [None]
